FAERS Safety Report 8913598 (Version 2)
Quarter: 2012Q4

REPORT INFORMATION
  Report Type: 
  Country: BE (occurrence: BE)
  Receive Date: 20121119
  Receipt Date: 20121129
  Transmission Date: 20130627
  Serious: Yes (Hospitalization)
  Sender: FDA-Public Use
  Company Number: BE-JNJFOC-20121106143

PATIENT
  Age: 80 Year
  Sex: Female

DRUGS (10)
  1. XARELTO [Suspect]
     Indication: CEREBROVASCULAR ACCIDENT PROPHYLAXIS
     Route: 048
     Dates: start: 201207, end: 201209
  2. XARELTO [Suspect]
     Indication: ATRIAL FIBRILLATION
     Route: 048
     Dates: start: 201207, end: 201209
  3. INSULIN [Concomitant]
     Indication: DIABETES MELLITUS
     Route: 065
  4. LASIX [Concomitant]
     Route: 065
  5. ASAFLOW [Concomitant]
     Route: 065
  6. LANOXIN [Concomitant]
     Indication: ATRIAL FIBRILLATION
     Route: 065
  7. SOTALEX [Concomitant]
     Route: 065
  8. ELTHYRONE [Concomitant]
     Indication: HYPOTHYROIDISM
  9. DOLIPRANE [Concomitant]
     Route: 065
  10. DUROGESIC [Concomitant]
     Route: 065

REACTIONS (4)
  - Cerebrovascular accident [Unknown]
  - Fall [Unknown]
  - Tibia fracture [Unknown]
  - Drug ineffective [Unknown]
